FAERS Safety Report 10406769 (Version 1)
Quarter: 2014Q3

REPORT INFORMATION
  Report Type: Spontaneous
  Country: ES (occurrence: ES)
  Receive Date: 20140825
  Receipt Date: 20140825
  Transmission Date: 20150326
  Serious: Yes (Other)
  Sender: FDA-Public Use
  Company Number: PHHY2014ES103367

PATIENT
  Age: 48 Year
  Sex: Female
  Weight: 60 kg

DRUGS (2)
  1. ACETYLSALICYLIC ACID [Suspect]
     Active Substance: ASPIRIN
     Dosage: 100 MG, ONCE/SINGLE-ORAL PROVOCATION TEST
     Route: 048
  2. ACETYLSALICYLIC ACID [Suspect]
     Active Substance: ASPIRIN
     Dosage: 300 MG, BID

REACTIONS (15)
  - Nasal polyps [Unknown]
  - Pruritus [Recovered/Resolved]
  - Allergic respiratory disease [Unknown]
  - Sinusitis [Unknown]
  - Sinusitis bacterial [Unknown]
  - Erythema [Unknown]
  - Dyspnoea [Unknown]
  - Urticaria [Unknown]
  - Rash maculo-papular [Unknown]
  - Papule [Recovered/Resolved]
  - Wheezing [Unknown]
  - Nasal congestion [Unknown]
  - Drug hypersensitivity [Unknown]
  - Rash [Recovered/Resolved]
  - Asthma [Unknown]
